FAERS Safety Report 20305606 (Version 1)
Quarter: 2022Q1

REPORT INFORMATION
  Report Type: Other
  Country: None (occurrence: US)
  Receive Date: 20220106
  Receipt Date: 20220106
  Transmission Date: 20220423
  Serious: Yes (Hospitalization, Other)
  Sender: FDA-Public Use
  Company Number: US-Prestige Brands -2123680

PATIENT
  Age: 87 Year
  Sex: Male

DRUGS (2)
  1. ASPIRIN [Suspect]
     Active Substance: ASPIRIN
     Indication: Product used for unknown indication
     Route: 065
  2. Unknown Bowel Prep [Concomitant]
     Route: 065

REACTIONS (1)
  - Aorto-oesophageal fistula [Recovered/Resolved]
